FAERS Safety Report 14653295 (Version 1)
Quarter: 2018Q1

REPORT INFORMATION
  Report Type: Spontaneous
  Country: FR (occurrence: FR)
  Receive Date: 20180319
  Receipt Date: 20180319
  Transmission Date: 20180509
  Serious: Yes (Other)
  Sender: FDA-Public Use
  Company Number: FR-MERCK KGAA-2044031

PATIENT
  Age: 55 Year
  Sex: Female
  Weight: 64 kg

DRUGS (1)
  1. NOVOTHYROX [Suspect]
     Active Substance: LEVOTHYROXINE SODIUM
     Indication: AUTOIMMUNE THYROIDITIS
     Route: 048
     Dates: start: 20170501

REACTIONS (7)
  - Headache [Unknown]
  - Myalgia [Unknown]
  - Insomnia [Unknown]
  - Urticaria [Unknown]
  - Hot flush [Unknown]
  - Depression [Unknown]
  - Vertigo [Unknown]

NARRATIVE: CASE EVENT DATE: 20170508
